FAERS Safety Report 5380496-1 (Version None)
Quarter: 2007Q3

REPORT INFORMATION
  Report Type: 
  Country: None (occurrence: None)
  Receive Date: 20070706
  Receipt Date: 20070605
  Transmission Date: 20080115
  Serious: No
  Sender: FDA-Public Use
  Company Number: A0654285A

PATIENT
  Age: 45 Year
  Sex: Female

DRUGS (6)
  1. TYKERB [Suspect]
     Indication: BREAST CANCER
     Dosage: 5TAB PER DAY
     Route: 048
     Dates: start: 20070419, end: 20070530
  2. LISINOPRIL [Concomitant]
  3. EFFEXOR [Concomitant]
  4. KLOR-CON [Concomitant]
  5. PROTONIX [Concomitant]
  6. DARVOCET [Concomitant]

REACTIONS (2)
  - ACNE [None]
  - RASH [None]
